FAERS Safety Report 10982957 (Version 1)
Quarter: 2015Q2

REPORT INFORMATION
  Report Type: Spontaneous
  Country: US (occurrence: US)
  Receive Date: 20150403
  Receipt Date: 20150403
  Transmission Date: 20150821
  Serious: No
  Sender: FDA-Public Use
  Company Number: US-ASTRAZENECA-2015SE28715

PATIENT

DRUGS (3)
  1. SEROQUEL [Suspect]
     Active Substance: QUETIAPINE FUMARATE
     Indication: SLEEP DISORDER
     Route: 048
     Dates: end: 20140214
  2. SEROQUEL [Suspect]
     Active Substance: QUETIAPINE FUMARATE
     Indication: SLEEP DISORDER
     Route: 048
  3. SEROQUEL [Suspect]
     Active Substance: QUETIAPINE FUMARATE
     Indication: SLEEP DISORDER
     Dosage: GENERICS
     Route: 048

REACTIONS (9)
  - Gastrointestinal haemorrhage [Unknown]
  - Panic attack [Unknown]
  - Duodenitis [Unknown]
  - Irritability [Unknown]
  - Depression [Unknown]
  - Gastritis [Unknown]
  - Anxiety [Unknown]
  - Crying [Unknown]
  - Mood swings [Unknown]
